FAERS Safety Report 9528231 (Version 2)
Quarter: 2013Q3

REPORT INFORMATION
  Report Type: Spontaneous
  Country: RU (occurrence: RU)
  Receive Date: 20130917
  Receipt Date: 20130919
  Transmission Date: 20140515
  Serious: Yes (Other)
  Sender: FDA-Public Use
  Company Number: PHHY2013RU101816

PATIENT
  Sex: Female

DRUGS (1)
  1. ZOMETA [Suspect]
     Indication: BREAST CANCER
     Dosage: UNK UKN, EVERY 21 DAYS
     Dates: start: 201305

REACTIONS (3)
  - Renal disorder [Unknown]
  - Metastases to kidney [Unknown]
  - Oedema [Recovered/Resolved]
